FAERS Safety Report 25620479 (Version 2)
Quarter: 2025Q3

REPORT INFORMATION
  Report Type: Report from Study
  Country: US (occurrence: US)
  Receive Date: 20250730
  Receipt Date: 20250917
  Transmission Date: 20251020
  Serious: Yes (Other)
  Sender: UCB
  Company Number: US-UCBSA-2025046307

PATIENT
  Age: 43 Year
  Sex: Female

DRUGS (1)
  1. BIMEKIZUMAB [Suspect]
     Active Substance: BIMEKIZUMAB
     Indication: Psoriasis
     Dosage: 320 MILLIGRAM, EV 4 WEEKS
     Route: 058
     Dates: start: 20250707

REACTIONS (4)
  - Rectal haemorrhage [Unknown]
  - Abdominal pain upper [Unknown]
  - Dyspepsia [Unknown]
  - Dysphagia [Unknown]

NARRATIVE: CASE EVENT DATE: 20250701
